FAERS Safety Report 18688368 (Version 2)
Quarter: 2021Q1

REPORT INFORMATION
  Report Type: Spontaneous
  Country: US (occurrence: US)
  Receive Date: 20201231
  Receipt Date: 20210202
  Transmission Date: 20210419
  Serious: Yes (Hospitalization, Other)
  Sender: FDA-Public Use
  Company Number: US-DRREDDYS-USA/USA/20/0130631

PATIENT
  Age: 23 Year
  Sex: Female

DRUGS (12)
  1. CYCLOPHOSPHAMIDE. [Suspect]
     Active Substance: CYCLOPHOSPHAMIDE
     Indication: PLASMABLASTIC LYMPHOMA
  2. DARATUMUMAB [Suspect]
     Active Substance: DARATUMUMAB
     Indication: PRODUCT USED FOR UNKNOWN INDICATION
  3. DOXORUBICIN HYDROCHLORIDE LIPOSOME INJECTION 20 MG/10 ML (2 MG/ML) AND [Suspect]
     Active Substance: DOXORUBICIN HYDROCHLORIDE
     Indication: PLASMABLASTIC LYMPHOMA
  4. OCTREOTIDE. [Concomitant]
     Active Substance: OCTREOTIDE
     Indication: GORHAM^S DISEASE
  5. OCTREOTIDE. [Concomitant]
     Active Substance: OCTREOTIDE
     Indication: PLASMABLASTIC LYMPHOMA
  6. BORTEZOMIB. [Suspect]
     Active Substance: BORTEZOMIB
     Indication: PLASMABLASTIC LYMPHOMA
  7. DEXAMETHASONE SODIUM PHOSPHATE INJECTION, 4 MG/ML [Suspect]
     Active Substance: DEXAMETHASONE SODIUM PHOSPHATE
     Indication: PRODUCT USED FOR UNKNOWN INDICATION
  8. PREDNISONE. [Suspect]
     Active Substance: PREDNISONE
     Indication: PLASMABLASTIC LYMPHOMA
  9. ETOPOSIDE. [Suspect]
     Active Substance: ETOPOSIDE
     Indication: PLASMABLASTIC LYMPHOMA
  10. VINCRISTINE [Suspect]
     Active Substance: VINCRISTINE
     Indication: PLASMABLASTIC LYMPHOMA
  11. LENALIDOMIDE [Suspect]
     Active Substance: LENALIDOMIDE
     Indication: PRODUCT USED FOR UNKNOWN INDICATION
  12. SIROLIMUS. [Suspect]
     Active Substance: SIROLIMUS
     Indication: GORHAM^S DISEASE

REACTIONS (8)
  - Respiratory failure [Unknown]
  - Febrile neutropenia [Unknown]
  - Disease recurrence [Unknown]
  - Disease progression [Unknown]
  - Plasmablastic lymphoma [Unknown]
  - Mediastinal mass [Unknown]
  - Lymphadenopathy [Unknown]
  - Small intestinal obstruction [Unknown]
